FAERS Safety Report 8838245 (Version 2)
Quarter: 2014Q2

REPORT INFORMATION
  Report Type: Spontaneous
  Country: US (occurrence: US)
  Receive Date: 20121012
  Receipt Date: 20131024
  Transmission Date: 20141212
  Serious: No
  Sender: FDA-Public Use
  Company Number: US-PFIZER INC-2012252209

PATIENT
  Age: 32 Year
  Sex: Female

DRUGS (1)
  1. ADVIL PM [Suspect]
     Indication: MUSCULOSKELETAL PAIN
     Dosage: UNK, ONCE DAILY
     Route: 048
     Dates: start: 201209, end: 201210

REACTIONS (3)
  - Depression [Recovering/Resolving]
  - Headache [Recovering/Resolving]
  - Stress [Recovering/Resolving]
